FAERS Safety Report 18690731 (Version 2)
Quarter: 2021Q1

REPORT INFORMATION
  Report Type: Spontaneous
  Country: US (occurrence: US)
  Receive Date: 20210101
  Receipt Date: 20210213
  Transmission Date: 20210419
  Serious: Yes (Disabling)
  Sender: FDA-Public Use
  Company Number: US-ASTRAZENECA-2020SF68783

PATIENT
  Age: 79 Year
  Sex: Female
  Weight: 77.1 kg

DRUGS (2)
  1. FASLODEX [Suspect]
     Active Substance: FULVESTRANT
     Indication: TARGETED CANCER THERAPY
     Dosage: UNKNOWN
     Route: 030
     Dates: end: 202002
  2. IBRANCE [Suspect]
     Active Substance: PALBOCICLIB
     Indication: BREAST CANCER FEMALE
     Dosage: UNKNOWN
     Route: 048

REACTIONS (4)
  - Back pain [Not Recovered/Not Resolved]
  - Gait disturbance [Not Recovered/Not Resolved]
  - Depression [Not Recovered/Not Resolved]
  - Injection site mass [Not Recovered/Not Resolved]
